FAERS Safety Report 20545157 (Version 1)
Quarter: 2022Q1

REPORT INFORMATION
  Report Type: Spontaneous
  Country: US (occurrence: US)
  Receive Date: 20220303
  Receipt Date: 20220303
  Transmission Date: 20220423
  Serious: No
  Sender: FDA-Public Use
  Company Number: US-ALLERGAN-2111570US

PATIENT
  Age: 75 Year
  Sex: Female

DRUGS (2)
  1. RESTASIS [Suspect]
     Active Substance: CYCLOSPORINE
     Indication: Dry eye
     Dosage: 2 GTT, BID
     Dates: start: 2011, end: 202101
  2. RESTASIS [Suspect]
     Active Substance: CYCLOSPORINE
     Indication: Macular degeneration

REACTIONS (8)
  - Vision blurred [Recovered/Resolved]
  - Off label use [Unknown]
  - Therapy interrupted [Unknown]
  - Foreign body sensation in eyes [Unknown]
  - Product complaint [Unknown]
  - Eye discharge [Recovered/Resolved]
  - Product colour issue [Unknown]
  - Liquid product physical issue [Unknown]

NARRATIVE: CASE EVENT DATE: 20201201
